FAERS Safety Report 20244720 (Version 1)
Quarter: 2021Q4

REPORT INFORMATION
  Report Type: Other
  Country: GB (occurrence: GB)
  Receive Date: 20211229
  Receipt Date: 20211229
  Transmission Date: 20220303
  Serious: No
  Sender: FDA-Public Use
  Company Number: None

PATIENT
  Age: 39 Year
  Sex: Female
  Weight: 100 kg

DRUGS (12)
  1. SERTRALINE HYDROCHLORIDE [Suspect]
     Active Substance: SERTRALINE HYDROCHLORIDE
     Indication: Abdominal pain
     Dosage: UNK
     Route: 048
  2. COCODAMOL [Concomitant]
     Active Substance: ACETAMINOPHEN\CODEINE PHOSPHATE
     Indication: Pain
     Dosage: 1 OR 2 THREE TIMES A DAY WHEN REQUIRED. DO NOT TAKE ANY OTHER OVER THE COUNTER ANALGESI
     Route: 065
     Dates: start: 20211015, end: 20211115
  3. COCODAMOL [Concomitant]
     Active Substance: ACETAMINOPHEN\CODEINE PHOSPHATE
     Dosage: 1 OR 2 THREE TIMES A DAY WHEN REQUIRED. DO NOT TAKE ANY OTHER OVER THE COUNTER ANALGESI
     Route: 065
     Dates: start: 20211115
  4. COCODAMOL [Concomitant]
     Active Substance: ACETAMINOPHEN\CODEINE PHOSPHATE
     Dosage: 1 OR 2 THREE TIMES A DAY WHEN REQUIRED. DO NOT TAKE ANY OTHER OVER THE COUNTER ANALGESI
     Route: 065
     Dates: start: 20211015
  5. COCODAMOL [Concomitant]
     Active Substance: ACETAMINOPHEN\CODEINE PHOSPHATE
     Dosage: 1 OR 2 THREE TIMES A DAY WHEN REQUIRED. DO NOT TAKE ANY OTHER OVER THE COUNTER ANALGESI
     Route: 065
     Dates: start: 20211115, end: 20211115
  6. DIHYDROCODEINE [Concomitant]
     Active Substance: DIHYDROCODEINE
     Indication: Pain
     Dosage: ONE OR TWO TABLETS ONCE A DAY BEFORE BED
     Route: 065
     Dates: start: 20211115, end: 20211115
  7. DIHYDROCODEINE [Concomitant]
     Active Substance: DIHYDROCODEINE
     Dosage: ONE OR TWO TABLETS ONCE A DAY BEFORE BED
     Route: 065
     Dates: start: 20211015
  8. DIHYDROCODEINE [Concomitant]
     Active Substance: DIHYDROCODEINE
     Dosage: ONE OR TWO TABLETS ONCE A DAY BEFORE BED
     Route: 065
     Dates: start: 20211115, end: 20211116
  9. DIHYDROCODEINE [Concomitant]
     Active Substance: DIHYDROCODEINE
     Dosage: ONE OR TWO TABLETS ONCE A DAY BEFORE BED
     Route: 065
     Dates: start: 20211015, end: 20211115
  10. DIHYDROCODEINE [Concomitant]
     Active Substance: DIHYDROCODEINE
     Dosage: ONE OR TWO TABLETS ONCE A DAY BEFORE BED
     Route: 065
     Dates: start: 20211115
  11. ESOMEPRAZOLE [Concomitant]
     Active Substance: ESOMEPRAZOLE
     Indication: Acid base balance abnormal
     Dosage: 1 DOSAGE FORM, QD (GASTRO-RESISTANT CAPSULES)
     Route: 065
     Dates: start: 20211015
  12. TRAMADOL [Concomitant]
     Active Substance: TRAMADOL
     Indication: Pain
     Dosage: TAKE 1-2 AT NIGHT
     Route: 065
     Dates: start: 20211129

REACTIONS (1)
  - Hyperhidrosis [Recovering/Resolving]

NARRATIVE: CASE EVENT DATE: 20211203
